FAERS Safety Report 18730496 (Version 1)
Quarter: 2021Q1

REPORT INFORMATION
  Report Type: Spontaneous
  Country: AR (occurrence: AR)
  Receive Date: 20210112
  Receipt Date: 20210112
  Transmission Date: 20210419
  Serious: Yes (Other)
  Sender: FDA-Public Use
  Company Number: AR-PFIZER INC-2021013485

PATIENT

DRUGS (2)
  1. FULVESTRANT. [Concomitant]
     Active Substance: FULVESTRANT
  2. IBRANCE [Suspect]
     Active Substance: PALBOCICLIB
     Dosage: UNK
     Dates: end: 202005

REACTIONS (3)
  - Osteomyelitis [Unknown]
  - Decreased immune responsiveness [Unknown]
  - Fall [Unknown]

NARRATIVE: CASE EVENT DATE: 20191230
